FAERS Safety Report 6722364-6 (Version None)
Quarter: 2010Q2

REPORT INFORMATION
  Report Type: 
  Country: None (occurrence: None)
  Receive Date: 20100512
  Receipt Date: 20100504
  Transmission Date: 20101027
  Serious: No
  Sender: FDA-Public Use
  Company Number: US-B.I. PHARMACEUTICALS,INC./RIDGEFIELD-2009-BP-08222BP

PATIENT
  Age: 82 Year
  Sex: Female

DRUGS (5)
  1. COMBIVENT [Suspect]
     Indication: CHRONIC OBSTRUCTIVE PULMONARY DISEASE
     Route: 055
     Dates: start: 20040101
  2. LANOXIN [Concomitant]
     Indication: CARDIAC DISORDER
  3. NITROGLYCERIN [Concomitant]
     Indication: CARDIAC DISORDER
     Route: 048
  4. METHAMAZOLE [Concomitant]
     Indication: THYROID DISORDER
  5. DIGOXIN [Concomitant]
     Indication: CARDIAC DISORDER

REACTIONS (2)
  - DRUG INEFFECTIVE [None]
  - DYSPNOEA [None]
